FAERS Safety Report 18552415 (Version 1)
Quarter: 2020Q4

REPORT INFORMATION
  Report Type: Other
  Country: JP (occurrence: JP)
  Receive Date: 20201127
  Receipt Date: 20201127
  Transmission Date: 20210114
  Serious: Yes (Hospitalization, Other)
  Sender: FDA-Public Use
  Company Number: JP-ROCHE-2719048

PATIENT
  Age: 81 Year
  Sex: Male
  Weight: 63 kg

DRUGS (11)
  1. MIDAZOLAM. [Suspect]
     Active Substance: MIDAZOLAM
     Indication: SEDATION
     Route: 065
  2. AMLODIPINE [Concomitant]
     Active Substance: AMLODIPINE BESYLATE
  3. EPADEL [Concomitant]
     Active Substance: ICOSAPENT
  4. DIAZEPAM. [Suspect]
     Active Substance: DIAZEPAM
     Indication: SEDATION
     Route: 042
  5. LENDORMIN [Concomitant]
     Active Substance: BROTIZOLAM
  6. PLAVIX [Concomitant]
     Active Substance: CLOPIDOGREL BISULFATE
  7. ANEXATE [Suspect]
     Active Substance: FLUMAZENIL
     Indication: TOXICITY TO VARIOUS AGENTS
     Route: 065
  8. PROPOFOL. [Suspect]
     Active Substance: PROPOFOL
     Indication: SEDATION
     Route: 065
  9. HERBESSER [Concomitant]
     Active Substance: DILTIAZEM HYDROCHLORIDE
  10. PAXIL [Concomitant]
     Active Substance: PAROXETINE HYDROCHLORIDE
  11. NITROTAB [Concomitant]

REACTIONS (3)
  - Atrioventricular block [Recovered/Resolved]
  - Sinus bradycardia [Recovering/Resolving]
  - Atrial fibrillation [Recovering/Resolving]
